FAERS Safety Report 9871878 (Version 1)
Quarter: 2014Q1

REPORT INFORMATION
  Report Type: Spontaneous
  Country: US (occurrence: US)
  Receive Date: 20140205
  Receipt Date: 20140205
  Transmission Date: 20141002
  Serious: No
  Sender: FDA-Public Use
  Company Number: US-ALLERGAN-1305680US

PATIENT
  Age: 51 Year
  Sex: Female

DRUGS (2)
  1. BOTOX COSMETIC [Suspect]
     Indication: SKIN WRINKLING
     Dosage: UNK, SINGLE
     Route: 030
     Dates: start: 20130312, end: 20130312
  2. BOTOX COSMETIC [Suspect]
     Indication: SKIN WRINKLING

REACTIONS (6)
  - Skin warm [Unknown]
  - Swelling face [Unknown]
  - Drug hypersensitivity [Unknown]
  - Rash [Recovered/Resolved]
  - Malaise [Not Recovered/Not Resolved]
  - Paraesthesia [Unknown]
